FAERS Safety Report 7098870-4 (Version None)
Quarter: 2010Q4

REPORT INFORMATION
  Report Type: 
  Country: None (occurrence: None)
  Receive Date: 20101112
  Receipt Date: 20090923
  Transmission Date: 20110411
  Serious: Yes (Other)
  Sender: FDA-Public Use
  Company Number: ZA-ROCHE-739493

PATIENT

DRUGS (1)
  1. ISOTRETINOIN [Suspect]
     Route: 065

REACTIONS (1)
  - GROWTH RETARDATION [None]
